FAERS Safety Report 22808504 (Version 2)
Quarter: 2024Q3

REPORT INFORMATION
  Report Type: Spontaneous
  Country: US (occurrence: US)
  Receive Date: 20230810
  Receipt Date: 20240702
  Transmission Date: 20241016
  Serious: Yes (Life-Threatening, Hospitalization, Other)
  Sender: SANOFI AVENTIS
  Company Number: US-SA-2023SA238986

PATIENT
  Age: 54 Year
  Sex: Female

DRUGS (5)
  1. AMLODIPINE [Suspect]
     Active Substance: AMLODIPINE BESYLATE
     Indication: Hypertension
     Dosage: 845 MG, 1X
  2. INSULIN GLARGINE [Suspect]
     Active Substance: INSULIN GLARGINE
     Indication: Chronic kidney disease
     Dosage: 600 U, 1X
  3. INSULIN GLARGINE [Suspect]
     Active Substance: INSULIN GLARGINE
     Indication: Type 2 diabetes mellitus
  4. LISINOPRIL [Suspect]
     Active Substance: LISINOPRIL
     Indication: Hypertension
     Dosage: 395 MG, 1X
  5. ASPIRIN [Suspect]
     Active Substance: ASPIRIN
     Dosage: 1539 MG, 1X

REACTIONS (8)
  - Acute kidney injury [Recovering/Resolving]
  - Toxicity to various agents [Recovering/Resolving]
  - Intentional overdose [Recovering/Resolving]
  - Bradycardia [Unknown]
  - Hypotension [Unknown]
  - Hyperglycaemia [Recovered/Resolved]
  - Hyporesponsive to stimuli [Unknown]
  - Hypoglycaemia [Unknown]
